FAERS Safety Report 10251976 (Version 1)
Quarter: 2014Q2

REPORT INFORMATION
  Report Type: Report from Study
  Country: CH (occurrence: None)
  Receive Date: 20140619
  Receipt Date: 20140619
  Transmission Date: 20141212
  Serious: Yes (Hospitalization)
  Sender: FDA-Public Use
  Company Number: AG-2014-003383

PATIENT
  Age: 61 Year
  Sex: Male

DRUGS (18)
  1. CHLORAMBUCIL [Suspect]
     Indication: CHRONIC LYMPHOCYTIC LEUKAEMIA
  2. OBINUTUZUMAB [Suspect]
     Indication: CHRONIC LYMPHOCYTIC LEUKAEMIA
     Dosage: INFUSION RATE 25 CYCLE 1 DAY 1 (25MG), INTRAVENOUS???
     Route: 042
     Dates: start: 20131113, end: 20131113
  3. FLUDARABINE [Suspect]
     Indication: CHRONIC LYMPHOCYTIC LEUKAEMIA
     Dosage: CYCLE 1 DAY 1 (25MG/KG, 1 IN 1 D), INTRAVENOUS
     Route: 042
     Dates: start: 20131113, end: 20131113
  4. CYCLOPHOSPHAMIDE [Suspect]
     Indication: CHRONIC LYMPHOCYTIC LEUKAEMIA
     Dosage: CYCLE 1 DAY 1 (250MG/KG, 1 IN 1 D), INTRAVENOUS
     Route: 042
     Dates: start: 20131113, end: 20131113
  5. CEFEPIME (INFUSION) [Concomitant]
  6. NEXIUM [Concomitant]
  7. DAFALGAN [Concomitant]
  8. BACTRIM FORTE [Concomitant]
  9. VALTREX [Concomitant]
  10. ALLOPURINOL [Concomitant]
  11. ZOFRAN [Concomitant]
  12. IMODIUM [Concomitant]
  13. DEXPANTHENOL [Concomitant]
  14. SOLCOSERYL [Concomitant]
  15. TAVEGYL [Concomitant]
  16. PARACETAMOL [Concomitant]
  17. PREDNISOLONE [Concomitant]
  18. RINGERS LACTATE [Concomitant]

REACTIONS (5)
  - Oesophageal candidiasis [None]
  - Oropharyngeal pain [None]
  - Vomiting [None]
  - Pain [None]
  - Asthenia [None]
